FAERS Safety Report 8916332 (Version 1)
Quarter: 2012Q4

REPORT INFORMATION
  Report Type: 
  Country: VE (occurrence: VE)
  Receive Date: 20121120
  Receipt Date: 20121120
  Transmission Date: 20130627
  Serious: Yes (Hospitalization)
  Sender: FDA-Public Use
  Company Number: VE-CUBIST-2012S1000932

PATIENT
  Age: 75 Year
  Sex: Female

DRUGS (5)
  1. CUBICIN [Suspect]
     Indication: POST PROCEDURAL INFECTION
     Route: 042
     Dates: start: 201008, end: 201008
  2. ACLASTA [Concomitant]
     Indication: OSTEOPOROSIS
     Route: 042
     Dates: start: 200912
  3. EXFORGE [Concomitant]
     Indication: HYPERTENSION
     Route: 048
     Dates: start: 2009
  4. EUTHYROX [Concomitant]
     Indication: THYROID DISORDER
     Route: 048
     Dates: start: 2007
  5. CORASPIRINA [Concomitant]
     Indication: PRODUCT USED FOR UNKNOWN INDICATION
     Route: 048

REACTIONS (3)
  - Emphysema [Recovered/Resolved]
  - Rash [Recovered/Resolved]
  - Chills [Recovered/Resolved]
